FAERS Safety Report 5931038-0 (Version None)
Quarter: 2008Q4

REPORT INFORMATION
  Report Type: 
  Country: None (occurrence: None)
  Receive Date: 20081027
  Receipt Date: 20081020
  Transmission Date: 20090506
  Serious: Yes (Death, Other)
  Sender: FDA-Public Use
  Company Number: GR-CELGENEUS-066-20785-07050721

PATIENT

DRUGS (8)
  1. THALOMID [Suspect]
     Indication: MULTIPLE MYELOMA
     Route: 048
  2. DEXAMETHASONE 4MG TAB [Suspect]
     Indication: MULTIPLE MYELOMA
     Route: 065
  3. VELCADE [Suspect]
     Indication: MULTIPLE MYELOMA
     Route: 051
  4. VELCADE [Suspect]
  5. MELPHALAN [Suspect]
     Indication: MULTIPLE MYELOMA
     Route: 065
  6. VALACYCLOVIR [Concomitant]
     Indication: PROPHYLAXIS
     Route: 065
  7. SULFAMETHOXAZOLE AND TRIMETHOPRIM [Concomitant]
     Indication: DRUG USE FOR UNKNOWN INDICATION
     Dosage: DOUBLE STENGTH
     Route: 048
  8. ZOLEDRONIC ACID [Concomitant]
     Indication: DRUG USE FOR UNKNOWN INDICATION
     Route: 051

REACTIONS (19)
  - ANAEMIA [None]
  - DIZZINESS [None]
  - EJECTION FRACTION DECREASED [None]
  - FATIGUE [None]
  - HEPATITIS B [None]
  - HERPES ZOSTER [None]
  - HYPERTRANSAMINASAEMIA [None]
  - HYPOCALCAEMIA [None]
  - HYPONATRAEMIA [None]
  - HYPOTENSION [None]
  - INFECTION [None]
  - LYMPHOPENIA [None]
  - NECROTISING FASCIITIS [None]
  - NEUROPATHY PERIPHERAL [None]
  - NEUTROPENIA [None]
  - PATHOLOGICAL FRACTURE [None]
  - PNEUMOCYSTIS JIROVECI PNEUMONIA [None]
  - SEPSIS [None]
  - THROMBOCYTOPENIA [None]
